APPROVED DRUG PRODUCT: DESOXIMETASONE
Active Ingredient: DESOXIMETASONE
Strength: 0.25%
Dosage Form/Route: OINTMENT;TOPICAL
Application: A073440 | Product #001
Applicant: ALTANA INC
Approved: Apr 1, 1998 | RLD: No | RS: No | Type: DISCN